FAERS Safety Report 5943625-4 (Version None)
Quarter: 2008Q4

REPORT INFORMATION
  Report Type: 
  Country: None (occurrence: None)
  Receive Date: 20081106
  Receipt Date: 20081025
  Transmission Date: 20090506
  Serious: Yes (Other)
  Sender: FDA-Public Use
  Company Number: US-PFIZER INC-2008043047

PATIENT
  Sex: Male
  Weight: 80 kg

DRUGS (8)
  1. DETROL LA [Suspect]
     Indication: HYPERTONIC BLADDER
     Route: 048
     Dates: start: 20080101
  2. AVODART [Concomitant]
  3. TAMSULOSIN HCL [Concomitant]
  4. COREG [Concomitant]
     Indication: CARDIAC DISORDER
  5. MULTI-VITAMINS [Concomitant]
  6. ALL OTHER THERAPEUTIC PRODUCTS [Concomitant]
  7. CARVEDILOL [Concomitant]
  8. ACETYLSALICYLIC ACID SRT [Concomitant]

REACTIONS (3)
  - BRADYCARDIA [None]
  - DRUG INEFFECTIVE [None]
  - NOCTURIA [None]
